FAERS Safety Report 5625225-9 (Version None)
Quarter: 2008Q1

REPORT INFORMATION
  Report Type: 
  Country: None (occurrence: None)
  Receive Date: 20080208
  Receipt Date: 20080129
  Transmission Date: 20080703
  Serious: Yes (Hospitalization, Other)
  Sender: FDA-Public Use
  Company Number: ADR0152008

PATIENT
  Age: 84 Year
  Sex: Male

DRUGS (6)
  1. CIPROFLOXACIN [Suspect]
     Indication: WOUND INFECTION PSEUDOMONAS
     Dosage: 500 MG FOUR TIMES PER DAY ORAL
     Route: 048
  2. ASPIRIN [Concomitant]
  3. FUROSEMIDE [Concomitant]
  4. ALLOPURINOL [Concomitant]
  5. CARVEDILOL [Concomitant]
  6. IRBESARTAN [Concomitant]

REACTIONS (7)
  - BLOOD CREATININE INCREASED [None]
  - DYSARTHRIA [None]
  - INCORRECT DOSE ADMINISTERED [None]
  - MASTICATION DISORDER [None]
  - NEUROTOXICITY [None]
  - RENAL IMPAIRMENT [None]
  - TREMOR [None]
